FAERS Safety Report 6619863-4 (Version None)
Quarter: 2010Q1

REPORT INFORMATION
  Report Type: 
  Country: None (occurrence: None)
  Receive Date: 20100309
  Receipt Date: 20100302
  Transmission Date: 20100710
  Serious: Yes (Life-Threatening, Disabling, Other)
  Sender: FDA-Public Use
  Company Number: US-CELGENEUS-163-20785-10012046

PATIENT
  Sex: Male

DRUGS (3)
  1. THALOMID [Suspect]
     Indication: MULTIPLE MYELOMA
     Route: 048
     Dates: start: 20091101, end: 20100125
  2. THALOMID [Suspect]
     Route: 048
     Dates: start: 20091001
  3. THALOMID [Suspect]
     Route: 048
     Dates: start: 20091012, end: 20091001

REACTIONS (6)
  - ASTHENIA [None]
  - COAGULOPATHY [None]
  - DRUG INEFFECTIVE [None]
  - FATIGUE [None]
  - NAUSEA [None]
  - VENOUS INSUFFICIENCY [None]
